FAERS Safety Report 17531508 (Version 1)
Quarter: 2020Q1

REPORT INFORMATION
  Report Type: Spontaneous
  Country: US (occurrence: US)
  Receive Date: 20200304
  Receipt Date: 20200304
  Transmission Date: 20200409
  Serious: Yes (Death)
  Sender: FDA-Public Use
  Company Number: None

PATIENT
  Sex: Male

DRUGS (10)
  1. ANTIVERT [Concomitant]
     Active Substance: MECLIZINE HYDROCHLORIDE
  2. MORPHINE SUL [Concomitant]
     Active Substance: MORPHINE SULFATE
  3. VITAMIN D3 [Concomitant]
     Active Substance: CHOLECALCIFEROL
  4. YERVOY [Concomitant]
     Active Substance: IPILIMUMAB
  5. LISINOPRIL. [Concomitant]
     Active Substance: LISINOPRIL
  6. ZOLINZA [Suspect]
     Active Substance: VORINOSTAT
     Indication: SKIN CANCER
     Route: 048
     Dates: start: 20191113
  7. OPDIVPO [Concomitant]
  8. ONDANSETRON [Concomitant]
     Active Substance: ONDANSETRON
  9. TRAMADOL HCL [Concomitant]
     Active Substance: TRAMADOL HYDROCHLORIDE
  10. PROMETHAZINE [Concomitant]
     Active Substance: PROMETHAZINE HYDROCHLORIDE

REACTIONS (1)
  - Death [None]
